FAERS Safety Report 5487986-1 (Version None)
Quarter: 2007Q4

REPORT INFORMATION
  Report Type: 
  Country: None (occurrence: None)
  Receive Date: 20071017
  Receipt Date: 20071005
  Transmission Date: 20080405
  Serious: Yes (Other)
  Sender: FDA-Public Use
  Company Number: US-AMGEN-US247381

PATIENT
  Sex: Male

DRUGS (2)
  1. ENBREL [Suspect]
     Indication: RHEUMATOID ARTHRITIS
     Route: 064
     Dates: start: 20030722, end: 20060118
  2. PREDNISONE [Concomitant]
     Route: 063

REACTIONS (5)
  - EAR INFECTION [None]
  - NASOPHARYNGITIS [None]
  - PAINFUL DEFAECATION [None]
  - PREMATURE BABY [None]
  - STREPTOCOCCAL INFECTION [None]
